FAERS Safety Report 8740357 (Version 2)
Quarter: 2012Q4

REPORT INFORMATION
  Report Type: 
  Country: US (occurrence: US)
  Receive Date: 20120823
  Receipt Date: 20121114
  Transmission Date: 20130627
  Serious: No
  Sender: FDA-Public Use
  Company Number: US-009507513-1208USA003866

PATIENT
  Age: 27 Year
  Sex: Female

DRUGS (1)
  1. IMPLANON [Suspect]
     Indication: CONTRACEPTION
     Dosage: 68mg/3 year implant in left arm
     Route: 059
     Dates: start: 20110506, end: 20120913

REACTIONS (3)
  - Pemphigus [Unknown]
  - Medical device complication [Unknown]
  - Device dislocation [None]
